FAERS Safety Report 8353827-8 (Version None)
Quarter: 2012Q2

REPORT INFORMATION
  Report Type: 
  Country: None (occurrence: None)
  Receive Date: 20120511
  Receipt Date: 20111219
  Transmission Date: 20120825
  Serious: No
  Sender: FDA-Public Use
  Company Number: US-GLAXOSMITHKLINE-A0958664A

PATIENT
  Sex: Female

DRUGS (10)
  1. XELODA [Suspect]
     Indication: PRODUCT USED FOR UNKNOWN INDICATION
     Dosage: 500MG UNKNOWN
     Route: 065
  2. ATIVAN [Concomitant]
  3. VITAMIN E [Concomitant]
  4. MIRALAX [Concomitant]
  5. TYKERB [Suspect]
     Indication: PRODUCT USED FOR UNKNOWN INDICATION
     Dosage: 1250MG SEE DOSAGE TEXT
     Route: 048
  6. VITAMIN B CO [Concomitant]
  7. SENOKOT [Concomitant]
  8. FLAXSEED OIL [Concomitant]
  9. NUVIGIL [Concomitant]
  10. VITAMIN D [Concomitant]

REACTIONS (1)
  - ERYTHEMA [None]
